FAERS Safety Report 4421113-4 (Version None)
Quarter: 2004Q3

REPORT INFORMATION
  Report Type: 
  Country: None (occurrence: None)
  Receive Date: 20040803
  Receipt Date: 20040719
  Transmission Date: 20050211
  Serious: Yes (Life-Threatening, Hospitalization)
  Sender: FDA-Public Use
  Company Number: 2002AP02208

PATIENT
  Age: 13 Year
  Sex: Male
  Weight: 40 kg

DRUGS (4)
  1. PROPOFOL [Suspect]
     Indication: CRANIOTOMY
     Dosage: 50 UG/KG /MIN IV
     Route: 042
  2. PROPOFOL [Suspect]
     Indication: SEDATION
     Dosage: 50 UG/KG /MIN IV
     Route: 042
  3. PROPOFOL [Suspect]
     Indication: CRANIOTOMY
     Dosage: 140 UG/KG /MIN IV
     Route: 042
  4. PROPOFOL [Suspect]
     Indication: SEDATION
     Dosage: 140 UG/KG /MIN IV
     Route: 042

REACTIONS (11)
  - CARDIAC FAILURE [None]
  - CARDIOGENIC SHOCK [None]
  - DIALYSIS [None]
  - ELECTROCARDIOGRAM QT PROLONGED [None]
  - ELECTROCARDIOGRAM T WAVE INVERSION [None]
  - METABOLIC ACIDOSIS [None]
  - PULMONARY OEDEMA [None]
  - RENAL FAILURE [None]
  - RHABDOMYOLYSIS [None]
  - VENTRICULAR DYSFUNCTION [None]
  - VENTRICULAR TACHYCARDIA [None]
